FAERS Safety Report 10203991 (Version 1)
Quarter: 2014Q2

REPORT INFORMATION
  Report Type: Spontaneous
  Country: US (occurrence: None)
  Receive Date: 20140523
  Receipt Date: 20140523
  Transmission Date: 20141212
  Serious: Yes (Hospitalization)
  Sender: FDA-Public Use
  Company Number: UTC-048496

PATIENT
  Age: 41 Year
  Sex: Female
  Weight: 97.5 kg

DRUGS (2)
  1. REMODULIN [Suspect]
     Indication: PULMONARY ARTERIAL HYPERTENSION
     Dosage: 0.036 UG/KG, CONTINUING, SUBCUTANEOUS?
     Route: 058
     Dates: start: 20120831
  2. LETARIS (AMBRISENTAN) [Concomitant]

REACTIONS (4)
  - Blindness [None]
  - Cerebrovascular accident [None]
  - Headache [None]
  - Thrombosis [None]
